FAERS Safety Report 4660602-4 (Version None)
Quarter: 2005Q2

REPORT INFORMATION
  Report Type: 
  Country: None (occurrence: None)
  Receive Date: 20050512
  Receipt Date: 20050421
  Transmission Date: 20051028
  Serious: Yes (Hospitalization, Other)
  Sender: FDA-Public Use
  Company Number: 2005PK00686

PATIENT
  Age: 871 Month
  Sex: Female
  Weight: 68 kg

DRUGS (3)
  1. ARIMIDEX [Suspect]
     Indication: BREAST CANCER
     Route: 048
     Dates: start: 20020101
  2. BELOC ZOK MITE [Concomitant]
     Indication: ATRIAL FIBRILLATION
  3. MARCUMAR [Concomitant]

REACTIONS (1)
  - HEPATITIS [None]
